FAERS Safety Report 5258317-7 (Version None)
Quarter: 2007Q1

REPORT INFORMATION
  Report Type: 
  Country: None (occurrence: None)
  Receive Date: 20070308
  Receipt Date: 20070226
  Transmission Date: 20070707
  Serious: Yes (Other)
  Sender: FDA-Public Use
  Company Number: CN-JNJFOC-20070206152

PATIENT
  Age: 33 Year
  Sex: Male

DRUGS (1)
  1. SPORANOX [Suspect]
     Indication: FUNGAL SKIN INFECTION
     Route: 048
     Dates: start: 20070103, end: 20070114

REACTIONS (3)
  - CHEST DISCOMFORT [None]
  - HEART RATE INCREASED [None]
  - SUPRAVENTRICULAR EXTRASYSTOLES [None]
